FAERS Safety Report 6682750-X (Version None)
Quarter: 2010Q2

REPORT INFORMATION
  Report Type: 
  Country: None (occurrence: None)
  Receive Date: 20100415
  Receipt Date: 20100413
  Transmission Date: 20101027
  Serious: Yes (Death, Hospitalization)
  Sender: FDA-Public Use
  Company Number: US-ELI_LILLY_AND_COMPANY-US201004003336

PATIENT
  Age: 22 Year
  Sex: Female

DRUGS (2)
  1. HUMALOG [Suspect]
     Indication: TYPE 1 DIABETES MELLITUS
  2. HUMALOG [Suspect]
     Route: 058

REACTIONS (7)
  - BLOOD GLUCOSE DECREASED [None]
  - BRAIN DEATH [None]
  - COMA [None]
  - DIABETIC KETOACIDOSIS [None]
  - FATIGUE [None]
  - HYPOXIC ENCEPHALOPATHY [None]
  - RESPIRATORY ARREST [None]
